FAERS Safety Report 10247224 (Version 1)
Quarter: 2014Q2

REPORT INFORMATION
  Report Type: Spontaneous
  Country: US (occurrence: US)
  Receive Date: 20140619
  Receipt Date: 20140619
  Transmission Date: 20141212
  Serious: Yes (Other)
  Sender: FDA-Public Use
  Company Number: US-GLAXOSMITHKLINE-A1077094A

PATIENT
  Age: 47 Year
  Sex: Female

DRUGS (9)
  1. LAMICTAL [Suspect]
     Indication: BIPOLAR DISORDER
     Dosage: 100MG TWICE PER DAY
     Route: 048
  2. PAXIL [Concomitant]
  3. XANAX [Concomitant]
  4. FLEXERIL [Concomitant]
  5. NORCO [Concomitant]
  6. MIRAPEX [Concomitant]
  7. AMLODIPINE [Concomitant]
  8. MULTIVITAMIN [Concomitant]
  9. METFORMIN [Concomitant]

REACTIONS (2)
  - Bipolar I disorder [Recovered/Resolved]
  - Mania [Recovered/Resolved]
